FAERS Safety Report 5686438-3 (Version None)
Quarter: 2008Q1

REPORT INFORMATION
  Report Type: 
  Country: None (occurrence: None)
  Receive Date: 20080328
  Receipt Date: 20070705
  Transmission Date: 20080703
  Serious: No
  Sender: FDA-Public Use
  Company Number: US-BAYER-US-2007-025049

PATIENT
  Age: 33 Year
  Sex: Female
  Weight: 64 kg

DRUGS (3)
  1. MIRENA [Suspect]
     Indication: CONTRACEPTION
     Route: 015
     Dates: start: 20070618
  2. PROPYLTHIOURACIL [Concomitant]
     Dosage: UNIT DOSE: 50 MG
  3. VITAMIN CAP [Concomitant]

REACTIONS (1)
  - VAGINAL HAEMORRHAGE [None]
